FAERS Safety Report 23282684 (Version 1)
Quarter: 2023Q4

REPORT INFORMATION
  Report Type: Spontaneous
  Country: CA (occurrence: CA)
  Receive Date: 20231211
  Receipt Date: 20231211
  Transmission Date: 20240110
  Serious: Yes (Other)
  Sender: FDA-Public Use
  Company Number: CA-002147023-NVSC2023CA259130

PATIENT
  Sex: Female

DRUGS (5)
  1. CARBOPLATIN [Suspect]
     Active Substance: CARBOPLATIN
     Indication: Ovarian cancer metastatic
     Dosage: UNK (5 AUC)
     Route: 065
     Dates: start: 20230203, end: 20231110
  2. LETROZOLE [Suspect]
     Active Substance: LETROZOLE
     Indication: Ovarian cancer metastatic
     Dosage: UNK
     Route: 065
  3. PACLITAXEL [Suspect]
     Active Substance: PACLITAXEL
     Indication: Ovarian cancer metastatic
     Dosage: 175 MG
     Route: 065
     Dates: start: 20230203, end: 20231110
  4. BEVACIZUMAB [Concomitant]
     Active Substance: BEVACIZUMAB
     Indication: Ovarian cancer metastatic
     Dosage: 7.5 MG/KG
     Route: 065
     Dates: start: 20230203, end: 20231110
  5. TRAMETINIB [Concomitant]
     Active Substance: TRAMETINIB
     Indication: Ovarian cancer metastatic
     Dosage: 2 MG, QD
     Route: 065

REACTIONS (2)
  - Ovarian cancer [Unknown]
  - Malignant neoplasm progression [Unknown]

NARRATIVE: CASE EVENT DATE: 20230201
